FAERS Safety Report 8275878-4 (Version None)
Quarter: 2012Q2

REPORT INFORMATION
  Report Type: 
  Country: None (occurrence: None)
  Receive Date: 20120412
  Receipt Date: 20120406
  Transmission Date: 20120825
  Serious: Yes (Hospitalization)
  Sender: FDA-Public Use
  Company Number: FR-SANOFI-AVENTIS-2012SA011198

PATIENT
  Age: 61 Year
  Sex: Male

DRUGS (6)
  1. PLAVIX [Suspect]
     Route: 065
  2. VFEND [Suspect]
     Route: 065
  3. LEVOFLOXACIN [Suspect]
     Route: 065
  4. TAZOCILLINE [Suspect]
     Route: 065
  5. AZACITIDINE [Suspect]
     Route: 042
     Dates: end: 20120101
  6. ALFUZOSIN HCL [Concomitant]

REACTIONS (1)
  - PULMONARY FIBROSIS [None]
